FAERS Safety Report 14963910 (Version 9)
Quarter: 2025Q3

REPORT INFORMATION
  Report Type: Other
  Country: CA (occurrence: CA)
  Receive Date: 20180601
  Receipt Date: 20250714
  Transmission Date: 20251021
  Serious: Yes (Other)
  Sender: APOTEX
  Company Number: CA-APOTEX-2018AP014788

PATIENT
  Age: 70 Year
  Sex: Female
  Weight: 94 kg

DRUGS (23)
  1. MOXIFLOXACIN [Suspect]
     Active Substance: MOXIFLOXACIN
     Indication: Product used for unknown indication
     Dosage: 400 MILLIGRAM, QD
     Route: 065
  2. MOXIFLOXACIN [Suspect]
     Active Substance: MOXIFLOXACIN
     Route: 065
  3. MOXIFLOXACIN [Suspect]
     Active Substance: MOXIFLOXACIN
     Route: 065
  4. MOXIFLOXACIN [Suspect]
     Active Substance: MOXIFLOXACIN
     Route: 065
  5. CICLESONIDE [Suspect]
     Active Substance: CICLESONIDE
     Indication: Product used for unknown indication
     Route: 065
  6. CICLESONIDE [Suspect]
     Active Substance: CICLESONIDE
     Route: 065
  7. FUROSEMIDE [Suspect]
     Active Substance: FUROSEMIDE
     Indication: Product used for unknown indication
     Dosage: 40 MILLIGRAM, QD
     Route: 065
  8. PREDNISONE [Suspect]
     Active Substance: PREDNISONE
     Indication: Pneumonia
     Dosage: 50 MILLIGRAM, QD
     Route: 065
  9. PREDNISONE [Suspect]
     Active Substance: PREDNISONE
     Indication: Product used for unknown indication
     Route: 065
  10. PREDNISONE [Suspect]
     Active Substance: PREDNISONE
     Indication: Pneumonia
     Route: 048
  11. PREDNISONE [Suspect]
     Active Substance: PREDNISONE
     Route: 065
  12. ALBUTEROL [Suspect]
     Active Substance: ALBUTEROL
     Indication: Product used for unknown indication
     Dosage: 100 MICROGRAM, QD
     Route: 065
  13. ALBUTEROL [Suspect]
     Active Substance: ALBUTEROL
     Route: 065
  14. CICLESONIDE [Suspect]
     Active Substance: CICLESONIDE
     Indication: Product used for unknown indication
     Dosage: 50 MICROGRAM, QD
  15. BUDESONIDE\FORMOTEROL FUMARATE DIHYDRATE [Suspect]
     Active Substance: BUDESONIDE\FORMOTEROL FUMARATE DIHYDRATE
     Indication: Product used for unknown indication
     Dosage: 200 MICROGRAM, QD
  16. TIOTROPIUM [Suspect]
     Active Substance: TIOTROPIUM
     Indication: Product used for unknown indication
     Route: 065
  17. MEPOLIZUMAB [Suspect]
     Active Substance: MEPOLIZUMAB
     Indication: Asthma
     Route: 042
  18. PREDNISONE [Suspect]
     Active Substance: PREDNISONE
     Indication: Pneumonia
     Route: 042
  19. PREDNISONE [Suspect]
     Active Substance: PREDNISONE
     Indication: Product used for unknown indication
  20. PREDNISONE [Suspect]
     Active Substance: PREDNISONE
     Indication: Pneumonia
  21. SPIRIVA [Suspect]
     Active Substance: TIOTROPIUM BROMIDE MONOHYDRATE
     Indication: Product used for unknown indication
     Route: 065
  22. AVELOX [Suspect]
     Active Substance: MOXIFLOXACIN HYDROCHLORIDE
     Indication: Product used for unknown indication
     Route: 065
  23. SYMBICORT [Suspect]
     Active Substance: BUDESONIDE\FORMOTEROL FUMARATE DIHYDRATE
     Indication: Product used for unknown indication

REACTIONS (13)
  - Thyroid disorder [Recovered/Resolved]
  - Oropharyngeal pain [Recovered/Resolved]
  - Respiratory tract congestion [Recovered/Resolved]
  - Chest discomfort [Recovered/Resolved]
  - Bronchitis [Recovered/Resolved]
  - Pneumonia [Recovered/Resolved]
  - Pneumonia [Recovered/Resolved]
  - Eosinophil count increased [Recovered/Resolved]
  - Diabetes mellitus [Recovered/Resolved]
  - Depression [Recovered/Resolved]
  - Dyspnoea [Recovered/Resolved]
  - Asthma [Recovered/Resolved]
  - Drug ineffective [Recovered/Resolved]
